FAERS Safety Report 8126622-2 (Version None)
Quarter: 2012Q1

REPORT INFORMATION
  Report Type: 
  Country: None (occurrence: None)
  Receive Date: 20120210
  Receipt Date: 20120131
  Transmission Date: 20120608
  Serious: No
  Sender: FDA-Public Use
  Company Number: US-BIOGENIDEC-2011BI033611

PATIENT
  Age: 68 Year
  Sex: Female

DRUGS (1)
  1. TYSABRI [Suspect]
     Indication: MULTIPLE SCLEROSIS
     Route: 042
     Dates: start: 20110322

REACTIONS (8)
  - FATIGUE [None]
  - LIMB INJURY [None]
  - URINARY TRACT INFECTION [None]
  - INFLAMMATION [None]
  - PAIN [None]
  - DYSPHAGIA [None]
  - STRESS [None]
  - JOINT INJURY [None]
